FAERS Safety Report 14641856 (Version 2)
Quarter: 2018Q2

REPORT INFORMATION
  Report Type: Spontaneous
  Country: IT (occurrence: IT)
  Receive Date: 20180315
  Receipt Date: 20180417
  Transmission Date: 20180711
  Serious: Yes (Other)
  Sender: FDA-Public Use
  Company Number: IT-JNJFOC-20180313207

PATIENT
  Age: 46 Year
  Sex: Female
  Weight: 56 kg

DRUGS (1)
  1. REMICADE [Suspect]
     Active Substance: INFLIXIMAB
     Indication: CROHN^S DISEASE
     Route: 042
     Dates: start: 20150526, end: 20171031

REACTIONS (2)
  - Lupus-like syndrome [Recovered/Resolved]
  - Autoimmune hepatitis [Recovered/Resolved]

NARRATIVE: CASE EVENT DATE: 20171031
